FAERS Safety Report 5860946-4 (Version None)
Quarter: 2008Q3

REPORT INFORMATION
  Report Type: 
  Country: None (occurrence: None)
  Receive Date: 20080826
  Receipt Date: 20080811
  Transmission Date: 20090109
  Serious: Yes (Hospitalization)
  Sender: FDA-Public Use
  Company Number: 2008AL006132

PATIENT
  Age: 78 Year
  Sex: Male
  Weight: 79.3795 kg

DRUGS (1)
  1. DIGOXIN [Suspect]
     Dosage: DAILY, PO
     Route: 048

REACTIONS (2)
  - CONFUSIONAL STATE [None]
  - URINARY BLADDER HAEMORRHAGE [None]
